FAERS Safety Report 6821050-1 (Version None)
Quarter: 2010Q3

REPORT INFORMATION
  Report Type: 
  Country: None (occurrence: None)
  Receive Date: 20100707
  Receipt Date: 20071024
  Transmission Date: 20110219
  Serious: No
  Sender: FDA-Public Use
  Company Number: US-PFIZER INC-2007090700

PATIENT
  Sex: Male

DRUGS (4)
  1. VISTARIL CAP [Suspect]
     Indication: NERVOUSNESS
     Dates: start: 20070901
  2. CLINDAMYCIN [Suspect]
     Indication: TOOTH INFECTION
     Dates: start: 20071001, end: 20071001
  3. TRAZODONE HYDROCHLORIDE [Concomitant]
  4. METHADONE [Concomitant]

REACTIONS (3)
  - ABDOMINAL DISCOMFORT [None]
  - FALSE POSITIVE INVESTIGATION RESULT [None]
  - TOOTH INFECTION [None]
